FAERS Safety Report 9356767 (Version 3)
Quarter: 2013Q3

REPORT INFORMATION
  Report Type: Spontaneous
  Country: US (occurrence: US)
  Receive Date: 20130619
  Receipt Date: 20130805
  Transmission Date: 20140515
  Serious: Yes (Hospitalization, Other)
  Sender: FDA-Public Use
  Company Number: CHPA2013US009925

PATIENT
  Age: 75 Year
  Sex: Female

DRUGS (4)
  1. EXCEDRIN TENSION HEADACHE [Suspect]
     Indication: HEADACHE
     Dosage: 2 CAPS PRN; 1 CAP HS
     Route: 048
  2. EXCEDRIN TENSION HEADACHE [Suspect]
     Indication: PAIN
  3. TRAMADOL [Concomitant]
     Indication: PAIN
     Dosage: UNK, UNK
  4. MICARDIS HCT [Concomitant]
     Indication: HYPERTENSION
     Dosage: UNK, UNK

REACTIONS (16)
  - Ankle fracture [Recovered/Resolved]
  - Fall [Recovered/Resolved]
  - Renal failure [Recovering/Resolving]
  - Renal impairment [Not Recovered/Not Resolved]
  - Amnesia [Not Recovered/Not Resolved]
  - Intervertebral disc compression [Recovered/Resolved]
  - Pruritus [Recovered/Resolved]
  - Rash [Recovered/Resolved]
  - Vertigo [Recovered/Resolved]
  - Dizziness [Recovered/Resolved]
  - Disorientation [Recovered/Resolved]
  - Condition aggravated [Not Recovered/Not Resolved]
  - Headache [Not Recovered/Not Resolved]
  - Expired drug administered [Unknown]
  - Drug hypersensitivity [Not Recovered/Not Resolved]
  - Incorrect drug administration duration [Unknown]
